FAERS Safety Report 5168390-2 (Version None)
Quarter: 2006Q4

REPORT INFORMATION
  Report Type: 
  Country: None (occurrence: None)
  Receive Date: 20061208
  Receipt Date: 20061127
  Transmission Date: 20070319
  Serious: Yes (Other)
  Sender: FDA-Public Use
  Company Number: FR-ROCHE-472987

PATIENT
  Sex: Female

DRUGS (1)
  1. LARIAM [Suspect]
     Indication: MALARIA PROPHYLAXIS
     Route: 065

REACTIONS (2)
  - LARYNGEAL DISORDER [None]
  - TORTICOLLIS [None]
